FAERS Safety Report 7914579-6 (Version None)
Quarter: 2011Q4

REPORT INFORMATION
  Report Type: 
  Country: None (occurrence: None)
  Receive Date: 20111115
  Receipt Date: 20111103
  Transmission Date: 20120403
  Serious: Yes (Hospitalization)
  Sender: FDA-Public Use
  Company Number: PHHO2011NO14507

PATIENT
  Sex: Male

DRUGS (8)
  1. TASIGNA [Suspect]
     Indication: GASTROINTESTINAL STROMAL TUMOUR
     Dosage: 400 MG, BID
     Dates: start: 20110317, end: 20110825
  2. BRICANYL [Concomitant]
  3. IRBESARTAN [Concomitant]
     Dosage: 300 MG, QD
  4. METFORMIN HCL [Concomitant]
     Dosage: 1000 MG, BID
  5. FORMOTEROL FUMARATE [Concomitant]
  6. AEROBEC [Concomitant]
  7. NEXIUM [Concomitant]
     Dosage: 40 MG, QD
  8. GLIMEPIRIDE [Concomitant]
     Dosage: 2 MG, QD

REACTIONS (1)
  - MYOCARDIAL INFARCTION [None]
